FAERS Safety Report 24675774 (Version 1)
Quarter: 2024Q4

REPORT INFORMATION
  Report Type: Spontaneous
  Country: CH (occurrence: CH)
  Receive Date: 20241128
  Receipt Date: 20241128
  Transmission Date: 20250114
  Serious: Yes (Hospitalization, Other)
  Sender: GLAXOSMITHKLINE
  Company Number: None

PATIENT

DRUGS (26)
  1. LAMICTAL [Suspect]
     Active Substance: LAMOTRIGINE
     Indication: Product used for unknown indication
     Dosage: 75 MG, BID (0.75-0-0-0.75-0)
     Route: 048
  2. COLCHICINE [Suspect]
     Active Substance: COLCHICINE
     Indication: Autoinflammatory disease
     Dosage: 1 MG, BID (IN MARCH 2014 BREAK (LENGTH OF BREAK UNKNOWN))
     Route: 048
     Dates: start: 2017, end: 202403
  3. COLCHICINE [Suspect]
     Active Substance: COLCHICINE
     Dosage: 1 MG, BID (IN MARCH 2014 BREAK (LENGTH OF BREAK UNKNOWN))
     Route: 048
     Dates: end: 20240601
  4. KINERET [Suspect]
     Active Substance: ANAKINRA
     Indication: Autoinflammatory disease
     Dosage: 100 MG, QD (IN MARCH 2024 EVERY 3 DAYS)
     Route: 058
     Dates: start: 202204
  5. KINERET [Suspect]
     Active Substance: ANAKINRA
     Dosage: 100 MG, Q3D (100 MG EVERY 3 DAYS.)
     Route: 058
     Dates: end: 20241001
  6. TEGRETOL XR [Suspect]
     Active Substance: CARBAMAZEPINE
     Indication: Product used for unknown indication
     Dosage: 200 MG, QD (0-0-1-0 )
     Route: 048
  7. GABAPENTIN [Suspect]
     Active Substance: GABAPENTIN
     Indication: Product used for unknown indication
     Dosage: 300 MG, TID (1-1-1-0 )
     Route: 048
  8. GABAPENTIN [Suspect]
     Active Substance: GABAPENTIN
     Dosage: 800 MG, QD (0-0-0-2 )
     Route: 048
  9. PANTOPRAZOLE SODIUM [Suspect]
     Active Substance: PANTOPRAZOLE SODIUM
     Indication: Product used for unknown indication
     Dosage: UNK
     Route: 048
  10. Mydocalm [Concomitant]
     Indication: Product used for unknown indication
     Dosage: 50 MG, QD (1-0-0-0 )
     Route: 048
  11. METOPROLOL SUCCINATE [Concomitant]
     Active Substance: METOPROLOL SUCCINATE
     Indication: Product used for unknown indication
     Dosage: 25 MG, BID (1-0-1-0 )
     Route: 048
  12. CYKLOKAPRON [Concomitant]
     Active Substance: TRANEXAMIC ACID
     Indication: Haemorrhage
     Dosage: 1000 MG, TID (2-2-2)
     Route: 065
  13. MAGNESIUM ASPARTATE HYDROCHLORIDE [Concomitant]
     Active Substance: MAGNESIUM ASPARTATE HYDROCHLORIDE
     Indication: Product used for unknown indication
     Dosage: 10 MMOL, QD (0-1-0-0 )
     Route: 048
  14. CALCIUM\CHOLECALCIFEROL [Concomitant]
     Active Substance: CALCIUM\CHOLECALCIFEROL
     Indication: Product used for unknown indication
     Dosage: 1 DF, QD (500 MG/800 I.U. 0-1-0-0 )
     Route: 048
  15. DUSPATALIN RETARD [Concomitant]
     Indication: Product used for unknown indication
     Dosage: 200 MG, BID (1-0-1-0 )
     Route: 048
  16. FACTOR XIII CONCENTRATE (HUMAN) [Concomitant]
     Active Substance: FACTOR XIII CONCENTRATE (HUMAN)
     Indication: Product used for unknown indication
     Dosage: UNK UNK, Q2W (1250 U/20 ML)
     Route: 040
  17. VENOFER [Concomitant]
     Active Substance: IRON SUCROSE
     Indication: Iron deficiency
     Dosage: 250 MG, Q2W (250 MG EVERY 2 WEEKS)
     Route: 065
  18. VENOFER [Concomitant]
     Active Substance: IRON SUCROSE
     Dosage: 20 MG/ML, Q2W (20 MG/ML EVERY 2 WEEKS)
     Route: 042
  19. NASONEX [Concomitant]
     Active Substance: MOMETASONE FUROATE
     Indication: Product used for unknown indication
     Dosage: 2 DF, BID (50 ?G/PUFF NASAL SPRAY 2-0-2-0 IN EACH NOSTRIL  )
     Route: 045
  20. FLUTICASONE FUROATE\VILANTEROL TRIFENATATE [Concomitant]
     Active Substance: FLUTICASONE FUROATE\VILANTEROL TRIFENATATE
     Indication: Product used for unknown indication
     Dosage: UNK UNK, QD (99/22 ?G 1-0-0-0 )
     Route: 055
  21. CYCLOSPORINE [Concomitant]
     Active Substance: CYCLOSPORINE
     Indication: Product used for unknown indication
     Dosage: 1 DF, BID (1 MG/ML EYE DROPS 1-0-1-0)
     Route: 047
  22. CARBOMER [Concomitant]
     Active Substance: CARBOMER
     Indication: Product used for unknown indication
     Dosage: 1 DF, BID (2 MG/G EYE GEL 1-0-1-0 DROPS IN BOTH EYES)
     Route: 047
  23. Vitamin a blache [Concomitant]
     Indication: Product used for unknown indication
     Dosage: UNK (0.5 CM BOTH EYES) (15000 IU/G EYE OINTMENT 0-0-0-0.5-0-0 CM IN BOTH EYES )
     Route: 065
  24. HYALURONATE SODIUM [Concomitant]
     Active Substance: HYALURONATE SODIUM
     Indication: Product used for unknown indication
     Dosage: 1 DF, QID (2 MG/ML EYE DROPS 1-1-1-1)
     Route: 047
  25. HYDROCORTISONE SODIUM PHOSPHATE [Concomitant]
     Active Substance: HYDROCORTISONE SODIUM PHOSPHATE
     Indication: Product used for unknown indication
     Dosage: 1 DF, BID (3.35 MG/ML EYE DROPS 1-0-1-0 DROPS IN BOTH EYES )
     Route: 047
  26. CEFTRIAXONE [Concomitant]
     Active Substance: CEFTRIAXONE
     Indication: Alpha haemolytic streptococcal infection
     Dosage: UNK
     Route: 065

REACTIONS (1)
  - Bicytopenia [Recovering/Resolving]
